FAERS Safety Report 4727474-0 (Version None)
Quarter: 2005Q3

REPORT INFORMATION
  Report Type: 
  Country: None (occurrence: None)
  Receive Date: 20050727
  Receipt Date: 20050727
  Transmission Date: 20060218
  Serious: Yes (Hospitalization)
  Sender: FDA-Public Use
  Company Number: None

PATIENT
  Age: 81 Year
  Sex: Male
  Weight: 79.8331 kg

DRUGS (8)
  1. DIGOXIN [Suspect]
     Dosage: 0.25 MG PO DAILY
     Route: 048
  2. ENALAPRIL [Concomitant]
  3. LASIX [Concomitant]
  4. LEXAPRO [Concomitant]
  5. METOPROLOL [Concomitant]
  6. PRILOSEC [Concomitant]
  7. POTASSIUM CHLORIDE [Concomitant]
  8. COUMADIN [Concomitant]

REACTIONS (4)
  - BRADYCARDIA [None]
  - CARDIAC FAILURE [None]
  - DRUG TOXICITY [None]
  - HYPOTENSION [None]
